FAERS Safety Report 17811076 (Version 1)
Quarter: 2020Q2

REPORT INFORMATION
  Report Type: Spontaneous
  Country: DK (occurrence: DK)
  Receive Date: 20200521
  Receipt Date: 20200521
  Transmission Date: 20200714
  Serious: Yes (Disabling)
  Sender: FDA-Public Use
  Company Number: DK-ROCHE-2603003

PATIENT
  Age: 65 Year
  Sex: Male

DRUGS (2)
  1. BENDROZA [Concomitant]
     Active Substance: BENDROFLUMETHIAZIDE\POTASSIUM CHLORIDE
  2. ACTILYSE [Suspect]
     Active Substance: ALTEPLASE
     Indication: ISCHAEMIC STROKE
     Route: 042
     Dates: start: 20191201, end: 20191201

REACTIONS (4)
  - Hemiplegia [Unknown]
  - Cerebral haemorrhage [Recovered/Resolved with Sequelae]
  - Aphasia [Unknown]
  - Facial paralysis [Unknown]

NARRATIVE: CASE EVENT DATE: 20191202
